FAERS Safety Report 20750206 (Version 2)
Quarter: 2022Q2

REPORT INFORMATION
  Report Type: Spontaneous
  Country: US (occurrence: US)
  Receive Date: 20220426
  Receipt Date: 20220429
  Transmission Date: 20220720
  Serious: No
  Sender: FDA-Public Use
  Company Number: US-GSKCCFUS-Case-01357201_AE-78591

PATIENT
  Age: 24 Year
  Sex: Female

DRUGS (1)
  1. BENLYSTA [Suspect]
     Active Substance: BELIMUMAB
     Indication: Product used for unknown indication
     Dosage: 200 MG/ML, WE
     Dates: start: 20220421

REACTIONS (4)
  - Injection site pain [Recovered/Resolved]
  - Exposure via skin contact [Unknown]
  - Device use error [Unknown]
  - Underdose [Unknown]

NARRATIVE: CASE EVENT DATE: 20220421
